FAERS Safety Report 9516480 (Version 1)
Quarter: 2013Q1

REPORT INFORMATION
  Report Type: Spontaneous
  Country: US (occurrence: None)
  Receive Date: 20130305
  Receipt Date: 20130305
  Transmission Date: 20140127
  Serious: Yes (Other)
  Sender: FDA-Public Use
  Company Number: 163-21880-12113791

PATIENT
  Age: 78 Year
  Sex: Female
  Weight: 58.06 kg

DRUGS (10)
  1. REVLIMID (LENALIDOMIDE) (25 MILLIGRAM, CAPSULES) [Suspect]
     Indication: PLASMA CELL MYELOMA
     Route: 048
     Dates: start: 20121008
  2. ATENOLOL(ATENOLOL) (TABLETS) [Concomitant]
  3. BLACK COHOSH EXTRACT(CIMICIFUGA RACEMOSA EXTRACT)(UNKNOWN) [Concomitant]
  4. CALCIUM(CALCIUM)(TABLETS) [Concomitant]
  5. CELEBREX(CELECOXIB)(CAPSULES) [Concomitant]
  6. FISH OIL(FISH OIL)(CAPSULES) [Concomitant]
  7. IRON(IRON)(TABLETS) [Concomitant]
  8. MAGNESIUM(MAGNESIUM)(TABLETS) [Concomitant]
  9. OCUVITE(OCUVITE)(TABLETS) [Concomitant]
  10. POTASSIUM(POTASSIUM)(UNKNOWN) [Concomitant]

REACTIONS (3)
  - Headache [None]
  - Nausea [None]
  - Vomiting [None]
